FAERS Safety Report 8533589-1 (Version None)
Quarter: 2012Q3

REPORT INFORMATION
  Report Type: 
  Country: None (occurrence: None)
  Receive Date: 20120717
  Receipt Date: 20120717
  Transmission Date: 20120928
  Serious: No
  Sender: FDA-Public Use
  Company Number: None

PATIENT
  Sex: Female

DRUGS (1)
  1. AVONEX [Suspect]
     Indication: MULTIPLE SCLEROSIS
     Dosage: 30MCG ONCE WEEKLY IM
     Route: 030
     Dates: start: 20100312, end: 20120716

REACTIONS (3)
  - HOT FLUSH [None]
  - HEART RATE INCREASED [None]
  - DIZZINESS [None]
